FAERS Safety Report 4596105-5 (Version None)
Quarter: 2005Q1

REPORT INFORMATION
  Report Type: 
  Country: None (occurrence: None)
  Receive Date: 20050225
  Receipt Date: 20050210
  Transmission Date: 20050727
  Serious: Yes (Hospitalization)
  Sender: FDA-Public Use
  Company Number: 212594

PATIENT
  Age: 53 Year
  Sex: Female

DRUGS (8)
  1. HERCEPTIN [Suspect]
     Indication: BREAST CANCER METASTATIC
     Dosage: SEE IMAGE, INTRAVENOUS
     Route: 042
     Dates: start: 20040908, end: 20040908
  2. HERCEPTIN [Suspect]
     Indication: BREAST CANCER METASTATIC
     Dosage: SEE IMAGE, INTRAVENOUS
     Route: 042
     Dates: start: 20040915
  3. HERCEPTIN [Suspect]
     Indication: BREAST CANCER METASTATIC
     Dosage: SEE IMAGE, INTRAVENOUS
     Route: 042
     Dates: start: 20041103
  4. CAPECITABINE (CAPECITABINE) [Suspect]
     Indication: BREAST CANCER METASTATIC
     Dosage: 1000 MG/M2, BID, ORAL
     Route: 048
     Dates: start: 20040908
  5. CAPECITABINE (CAPECITABINE) [Suspect]
     Indication: BREAST CANCER METASTATIC
     Dosage: 1000 MG/M2, BID, ORAL
     Route: 048
     Dates: start: 20041103
  6. VINORELBINE (VINORELBINE) [Suspect]
     Indication: BREAST CANCER METASTATIC
     Dosage: SEE IMAGE, ORAL
     Route: 048
     Dates: start: 20040908, end: 20040915
  7. VINORELBINE (VINORELBINE) [Suspect]
     Indication: BREAST CANCER METASTATIC
     Dosage: SEE IMAGE, ORAL
     Route: 048
     Dates: start: 20040929
  8. VINORELBINE (VINORELBINE) [Suspect]
     Indication: BREAST CANCER METASTATIC
     Dosage: SEE IMAGE, ORAL
     Route: 048
     Dates: start: 20041103

REACTIONS (23)
  - ALANINE AMINOTRANSFERASE INCREASED [None]
  - ANXIETY [None]
  - ASPARTATE AMINOTRANSFERASE INCREASED [None]
  - ASTHENIA [None]
  - BLOOD ALKALINE PHOSPHATASE INCREASED [None]
  - BLOOD SODIUM DECREASED [None]
  - COUGH [None]
  - DEHYDRATION [None]
  - DIARRHOEA [None]
  - DYSPHAGIA [None]
  - FATIGUE [None]
  - FEBRILE NEUTROPENIA [None]
  - FEELING ABNORMAL [None]
  - GAMMA-GLUTAMYLTRANSFERASE INCREASED [None]
  - HYPOKALAEMIA [None]
  - INSOMNIA [None]
  - MOUTH ULCERATION [None]
  - NAUSEA [None]
  - ORAL INTAKE REDUCED [None]
  - PAIN [None]
  - PALLOR [None]
  - PHARYNGOLARYNGEAL PAIN [None]
  - VOMITING [None]
